FAERS Safety Report 4530071-3 (Version None)
Quarter: 2004Q4

REPORT INFORMATION
  Report Type: 
  Country: None (occurrence: None)
  Receive Date: 20041215
  Receipt Date: 20041130
  Transmission Date: 20050328
  Serious: Yes (Death)
  Sender: FDA-Public Use
  Company Number: 205517

PATIENT
  Age: 46 Year
  Sex: Female

DRUGS (3)
  1. AVONEX [Suspect]
     Indication: MULTIPLE SCLEROSIS
     Dosage: IM
     Route: 030
     Dates: start: 20040809, end: 20040101
  2. BACLOFEN [Concomitant]
  3. LEXAPRO [Concomitant]

REACTIONS (7)
  - ANOREXIA [None]
  - BACK PAIN [None]
  - DEPRESSION [None]
  - HYPOAESTHESIA [None]
  - NEURALGIA [None]
  - SUICIDAL IDEATION [None]
  - WEIGHT DECREASED [None]
